FAERS Safety Report 20812884 (Version 2)
Quarter: 2022Q3

REPORT INFORMATION
  Report Type: Report from Study
  Country: DE (occurrence: None)
  Receive Date: 20220511
  Receipt Date: 20220714
  Transmission Date: 20221027
  Serious: Yes (Hospitalization)
  Sender: FDA-Public Use
  Company Number: DE-ROCHE-3090164

PATIENT
  Age: 54 Year
  Sex: Female
  Weight: 65 kg

DRUGS (25)
  1. ATEZOLIZUMAB [Suspect]
     Active Substance: ATEZOLIZUMAB
     Indication: Triple negative breast cancer
     Dosage: 30/MAR/2022:DATE OF LAST DOSE PRIOR TO SAE ?DATE OF LAST DOSE PRIOR TO SAE: 01/JUN/2022
     Route: 041
     Dates: start: 20220106, end: 20220330
  2. PACLITAXEL [Suspect]
     Active Substance: PACLITAXEL
     Indication: Triple negative breast cancer
     Dosage: 23/MAR/2022: DATE OF LAST DOSE PRIOR TO SAE
     Route: 042
     Dates: start: 20220106
  3. CYCLOPHOSPHAMIDE [Suspect]
     Active Substance: CYCLOPHOSPHAMIDE
     Indication: Triple negative breast cancer
     Dosage: DATE OF LAST DOSE PRIOR TO SAE: 01/JUN/2022
     Route: 042
     Dates: start: 20220330
  4. CARBOPLATIN [Suspect]
     Active Substance: CARBOPLATIN
     Indication: Triple negative breast cancer
     Dosage: 23/MAR/2022:DATE OF LAST DOSE PRIOR TO SAE
     Route: 042
     Dates: start: 20220106
  5. EPIRUBICIN [Suspect]
     Active Substance: EPIRUBICIN
     Indication: Triple negative breast cancer
     Dosage: DATE OF LAST DOSE PRIOR TO SAE: 01/JUN/2022
     Route: 042
     Dates: start: 20220330
  6. DEXAMETHASONE [Concomitant]
     Active Substance: DEXAMETHASONE
     Dates: start: 20220106
  7. DEXAMETHASONE [Concomitant]
     Active Substance: DEXAMETHASONE
     Dates: start: 20220611, end: 20220617
  8. DIMETHINDENE MALEATE [Concomitant]
     Active Substance: DIMETHINDENE MALEATE
     Dosage: 1 AMP WEEKLY
     Dates: start: 20220106, end: 20220323
  9. SODIUM CHLORIDE [Concomitant]
     Active Substance: SODIUM CHLORIDE
     Dates: start: 20220106, end: 20220323
  10. PALONOSETRON [Concomitant]
     Active Substance: PALONOSETRON
     Dosage: 1 AMP WEEKLY
     Dates: start: 20220106
  11. APREPITANT [Concomitant]
     Active Substance: APREPITANT
     Dosage: 1 TBL AS NEEDED
     Dates: start: 20220106
  12. MOVICOL [Concomitant]
     Active Substance: POLYETHYLENE GLYCOL 3350\POTASSIUM CHLORIDE\SODIUM BICARBONATE\SODIUM CHLORIDE
     Dates: start: 20220112
  13. PANTOPRAZOLE SODIUM [Concomitant]
     Active Substance: PANTOPRAZOLE SODIUM
     Dates: start: 20220126
  14. MESNA [Concomitant]
     Active Substance: MESNA
     Dates: start: 20220330
  15. JONOSTERIL [Concomitant]
     Dates: start: 20220330
  16. FULPHILA [PEGFILGRASTIM] [Concomitant]
     Dates: start: 20220331
  17. LOPERAMIDE [Concomitant]
     Active Substance: LOPERAMIDE
     Dates: start: 20220412, end: 20220413
  18. LOPERAMIDE [Concomitant]
     Active Substance: LOPERAMIDE
     Dosage: 1 TAB AS NEEDED
     Dates: start: 20220615, end: 20220622
  19. PLATELETS [Concomitant]
     Active Substance: HUMAN PLATELET, ALLOGENIC
     Dates: start: 20220409, end: 20220409
  20. H2 BLOCKER RATIOPHARM [Concomitant]
     Dates: start: 20220106, end: 20220323
  21. PREDNISOLONE [Concomitant]
     Active Substance: PREDNISOLONE
     Dates: start: 20220616
  22. MEROPENEM [Concomitant]
     Active Substance: MEROPENEM
     Dates: start: 20220617, end: 20220623
  23. BERIPLEX HS [Concomitant]
     Active Substance: COAGULATION FACTOR IX HUMAN\COAGULATION FACTOR VII HUMAN\COAGULATION FACTOR X HUMAN\PROTEIN C\PROTEI
     Dosage: 4 AMP
     Dates: start: 20220617, end: 20220617
  24. METOCLOPRAMIDE [Concomitant]
     Active Substance: METOCLOPRAMIDE
     Dosage: 1 AMP AS NEEDED
     Dates: start: 20220609, end: 20220622
  25. ONDANSETRON [Concomitant]
     Active Substance: ONDANSETRON
     Dosage: 1 AMP AS NEEDED
     Dates: start: 20220609, end: 20220622

REACTIONS (2)
  - General physical health deterioration [Recovered/Resolved]
  - General physical health deterioration [Recovered/Resolved]

NARRATIVE: CASE EVENT DATE: 20220406
